FAERS Safety Report 6441453-7 (Version None)
Quarter: 2009Q4

REPORT INFORMATION
  Report Type: 
  Country: None (occurrence: None)
  Receive Date: 20091116
  Receipt Date: 20091111
  Transmission Date: 20100525
  Serious: Yes (Other)
  Sender: FDA-Public Use
  Company Number: A0816519A

PATIENT
  Age: 57 Year
  Sex: Female

DRUGS (4)
  1. ADVAIR DISKUS 100/50 [Suspect]
     Indication: ASTHMA
     Dosage: 1PUFF TWICE PER DAY
     Route: 055
     Dates: start: 20081001, end: 20091109
  2. ALBUTEROL [Concomitant]
  3. METFORMIN HCL [Concomitant]
  4. ENALAPRIL [Concomitant]

REACTIONS (6)
  - ARTHRALGIA [None]
  - EAR PAIN [None]
  - EYE HAEMORRHAGE [None]
  - EYELID PAIN [None]
  - MUSCULOSKELETAL PAIN [None]
  - SINUSITIS [None]
